FAERS Safety Report 5769783-2 (Version None)
Quarter: 2008Q2

REPORT INFORMATION
  Report Type: 
  Country: None (occurrence: None)
  Receive Date: 20080612
  Receipt Date: 20080409
  Transmission Date: 20081010
  Serious: No
  Sender: FDA-Public Use
  Company Number: US-ABBOTT-08P-163-0446310-00

PATIENT
  Age: 26 Year
  Sex: Female

DRUGS (2)
  1. HUMIRA [Suspect]
     Indication: PSORIASIS
     Route: 058
     Dates: start: 20070701, end: 20070801
  2. TOPICAL MEDICATIONS [Concomitant]
     Indication: PSORIASIS

REACTIONS (2)
  - ABDOMINAL PAIN [None]
  - PSORIASIS [None]
